FAERS Safety Report 4539426-4 (Version None)
Quarter: 2004Q4

REPORT INFORMATION
  Report Type: 
  Country: None (occurrence: None)
  Receive Date: 20041223
  Receipt Date: 20041208
  Transmission Date: 20050328
  Serious: Yes (Death)
  Sender: FDA-Public Use
  Company Number: USA041285685

PATIENT
  Sex: Male

DRUGS (2)
  1. CYMBALTA [Suspect]
     Dosage: 30 MG DAY
     Dates: start: 20041101
  2. FLECAINIDE ACETATE [Concomitant]

REACTIONS (1)
  - DRUG INTERACTION [None]
